FAERS Safety Report 7398874-8 (Version None)
Quarter: 2011Q2

REPORT INFORMATION
  Report Type: 
  Country: None (occurrence: None)
  Receive Date: 20110407
  Receipt Date: 20110330
  Transmission Date: 20111010
  Serious: Yes (Other)
  Sender: FDA-Public Use
  Company Number: JP-ASTELLAS-2011JP001333

PATIENT
  Age: 80 Year
  Sex: Female

DRUGS (10)
  1. VESICARE [Suspect]
     Dosage: 5 MG, UNKNOWN/D
     Route: 048
     Dates: start: 20110221
  2. ALMARL [Concomitant]
     Dosage: 20 MG, UNKNOWN/D
     Route: 048
  3. GOODMIN [Suspect]
     Dosage: 0.25 MG, UNKNOWN/D
     Route: 048
  4. VESICARE [Suspect]
     Indication: HYPERTONIC BLADDER
     Dosage: 10 MG, UNKNOWN/D
     Route: 048
     Dates: start: 20110111, end: 20110220
  5. VESICARE [Suspect]
     Dosage: 5 MG, UNKNOWN/D
     Route: 048
     Dates: start: 20110111
  6. PAXIL [Suspect]
     Dosage: 20 MG, UNKNOWN/D
     Route: 048
  7. LANDSEN [Concomitant]
     Dosage: 1 MG, UNKNOWN/D
     Route: 048
     Dates: start: 20110221
  8. ASPIRIN [Concomitant]
     Dosage: 100 MG, UNKNOWN/D
     Route: 048
  9. SENNARIDE [Concomitant]
     Dosage: 24 MG, UNKNOWN/D
     Route: 048
  10. SODIUM CHLORIDE [Concomitant]
     Dosage: 3.6 MG, UNKNOWN/D
     Route: 065
     Dates: start: 20110221

REACTIONS (1)
  - DELIRIUM [None]
